FAERS Safety Report 10528098 (Version 12)
Quarter: 2015Q3

REPORT INFORMATION
  Report Type: Report from Study
  Country: US (occurrence: US)
  Receive Date: 20141020
  Receipt Date: 20150724
  Transmission Date: 20151125
  Serious: Yes (Other)
  Sender: FDA-Public Use
  Company Number: US-SA-2014SA082269

PATIENT
  Age: 66 Year
  Sex: Female

DRUGS (5)
  1. AUBAGIO [Suspect]
     Active Substance: TERIFLUNOMIDE
     Indication: MULTIPLE SCLEROSIS
     Route: 048
  2. AUBAGIO [Suspect]
     Active Substance: TERIFLUNOMIDE
     Indication: MULTIPLE SCLEROSIS
     Route: 048
     Dates: start: 20141016
  3. AUBAGIO [Suspect]
     Active Substance: TERIFLUNOMIDE
     Indication: MULTIPLE SCLEROSIS
     Route: 048
  4. AUBAGIO [Suspect]
     Active Substance: TERIFLUNOMIDE
     Indication: MULTIPLE SCLEROSIS
     Route: 048
     Dates: start: 20131008, end: 20141009
  5. AUBAGIO [Suspect]
     Active Substance: TERIFLUNOMIDE
     Indication: MULTIPLE SCLEROSIS
     Route: 048

REACTIONS (38)
  - Pain in extremity [Unknown]
  - Multiple sclerosis relapse [Not Recovered/Not Resolved]
  - Rash pustular [Not Recovered/Not Resolved]
  - Fatigue [Unknown]
  - Dental caries [Unknown]
  - Diarrhoea [Not Recovered/Not Resolved]
  - Pruritus [Unknown]
  - Pyrexia [Not Recovered/Not Resolved]
  - Vomiting [Not Recovered/Not Resolved]
  - Dizziness [Unknown]
  - Rheumatoid arthritis [Unknown]
  - Dyspnoea [Recovering/Resolving]
  - Pain [Unknown]
  - Burning sensation [Unknown]
  - Gastric disorder [Unknown]
  - Aptyalism [Unknown]
  - Hypoaesthesia [Unknown]
  - Bronchitis [Recovered/Resolved]
  - Coordination abnormal [Unknown]
  - Gastrointestinal disorder [Not Recovered/Not Resolved]
  - Memory impairment [Unknown]
  - Tooth disorder [Unknown]
  - Arthralgia [Unknown]
  - Chest discomfort [Recovering/Resolving]
  - Dental care [Unknown]
  - Drug administration error [Unknown]
  - Carpal tunnel syndrome [Not Recovered/Not Resolved]
  - Asthenia [Unknown]
  - Gait disturbance [Unknown]
  - Musculoskeletal stiffness [Unknown]
  - Temporomandibular joint syndrome [Unknown]
  - Balance disorder [Unknown]
  - Onychoclasis [Unknown]
  - Infection [Unknown]
  - Chills [Not Recovered/Not Resolved]
  - Paraesthesia [Unknown]
  - Musculoskeletal pain [Unknown]
  - Cough [Recovering/Resolving]

NARRATIVE: CASE EVENT DATE: 2015
